FAERS Safety Report 5102046-7 (Version None)
Quarter: 2006Q3

REPORT INFORMATION
  Report Type: 
  Country: None (occurrence: None)
  Receive Date: 20060731
  Receipt Date: 20060526
  Transmission Date: 20061208
  Serious: No
  Sender: FDA-Public Use
  Company Number: 2006PV014576

PATIENT
  Age: 60 Year
  Sex: Male
  Weight: 145.151 kg

DRUGS (5)
  1. BYETTA [Suspect]
     Indication: DIABETES MELLITUS NON-INSULIN-DEPENDENT
     Dosage: SEE IMAGE
     Route: 058
     Dates: start: 20060428, end: 20060519
  2. BYETTA [Suspect]
     Indication: DIABETES MELLITUS NON-INSULIN-DEPENDENT
     Dosage: SEE IMAGE
     Route: 058
     Dates: start: 20060520
  3. GLYBURIDE [Concomitant]
  4. ACTOS /USA/ [Concomitant]
  5. METFORMIN HCL [Concomitant]

REACTIONS (1)
  - ARTHRALGIA [None]
